FAERS Safety Report 9815938 (Version 2)
Quarter: 2014Q1

REPORT INFORMATION
  Report Type: Spontaneous
  Country: US (occurrence: US)
  Receive Date: 20140114
  Receipt Date: 20140225
  Transmission Date: 20141002
  Serious: Yes (Life-Threatening, Hospitalization, Other)
  Sender: FDA-Public Use
  Company Number: US-BAYER-2014-002995

PATIENT
  Age: 68 Year
  Sex: Male
  Weight: 105.5 kg

DRUGS (10)
  1. ALEVE CAPLET [Suspect]
     Dosage: 10-20 DOSAGE FORMS
     Route: 048
     Dates: start: 20131107, end: 20131107
  2. BAYER ASPIRIN REGIMEN ADULT LOW STRENGTH [Suspect]
     Indication: PROPHYLAXIS
     Dosage: 81 MG, QD
     Route: 048
     Dates: start: 2012
  3. BAYER ASPIRIN REGIMEN ADULT LOW STRENGTH [Suspect]
     Indication: PROPHYLAXIS
     Dosage: SEVERAL DOSAGE FORMS
     Route: 048
     Dates: start: 20131107, end: 20131107
  4. GLUCOPHAGE [Suspect]
     Indication: DIABETES MELLITUS
     Dosage: 1000 MG, BID
     Route: 048
     Dates: start: 2006
  5. GLUCOPHAGE [Suspect]
     Indication: DIABETES MELLITUS
     Dosage: ROUGHLY 10 TABLETS
     Route: 048
     Dates: start: 20131107, end: 20131107
  6. OXYCODONE [Suspect]
     Dosage: UNK
     Dates: start: 20131107
  7. LISINOPRIL [Suspect]
     Indication: HYPERTENSION
     Dosage: 10MG IN AM AND 20MG IN PM
     Route: 048
     Dates: start: 2006
  8. LISINOPRIL [Suspect]
     Indication: HYPERTENSION
     Dosage: 12-15 DOSAFE FORMS
     Route: 048
     Dates: start: 20131107, end: 20131107
  9. HYDROCHLOROTHIAZIDE [Concomitant]
     Indication: HYPERTENSION
     Dosage: 12.5 MG, QD
     Dates: start: 2006
  10. LORATADINE [Concomitant]
     Indication: FOOD ALLERGY
     Dosage: 1 DF, QD
     Route: 048
     Dates: start: 1985

REACTIONS (7)
  - Suicide attempt [None]
  - Overdose [None]
  - Renal failure acute [None]
  - Hyponatraemia [None]
  - Major depression [Not Recovered/Not Resolved]
  - Incorrect drug administration duration [None]
  - Drug screen positive [None]
